FAERS Safety Report 8233267-2 (Version None)
Quarter: 2012Q1

REPORT INFORMATION
  Report Type: 
  Country: None (occurrence: None)
  Receive Date: 20120326
  Receipt Date: 20120314
  Transmission Date: 20120608
  Serious: Yes (Other)
  Sender: FDA-Public Use
  Company Number: CA-BAYER-2012-024828

PATIENT
  Age: 29 Year
  Sex: Female

DRUGS (4)
  1. PAMPRIN TAB [Concomitant]
     Indication: DYSMENORRHOEA
  2. MIDOL NIGHT TIME [Concomitant]
     Indication: DYSMENORRHOEA
  3. CETIRIZINE HCL [Concomitant]
  4. MIRENA [Suspect]
     Indication: MENORRHAGIA
     Dosage: UNK
     Dates: start: 20080101

REACTIONS (12)
  - AMENORRHOEA [None]
  - PANIC REACTION [None]
  - ACNE [None]
  - DEPRESSION SUICIDAL [None]
  - HYPERTRICHOSIS [None]
  - DYSMENORRHOEA [None]
  - DYSPAREUNIA [None]
  - HEART RATE INCREASED [None]
  - ALOPECIA [None]
  - ANXIETY [None]
  - MOOD SWINGS [None]
  - HYPERHIDROSIS [None]
